FAERS Safety Report 16040019 (Version 1)
Quarter: 2019Q1

REPORT INFORMATION
  Report Type: Spontaneous
  Country: US (occurrence: US)
  Receive Date: 20190306
  Receipt Date: 20190306
  Transmission Date: 20190418
  Serious: Yes (Hospitalization)
  Sender: FDA-Public Use
  Company Number: US-STRIDES ARCOLAB LIMITED-2019SP001998

PATIENT
  Age: 75 Year
  Sex: Female

DRUGS (3)
  1. SIMVASTATIN. [Concomitant]
     Active Substance: SIMVASTATIN
     Indication: PRODUCT USED FOR UNKNOWN INDICATION
     Dosage: 20 MG, AT BED TIME
     Route: 065
  2. HYDRALAZINE HCL [Suspect]
     Active Substance: HYDRALAZINE HYDROCHLORIDE
     Indication: HYPERTENSION
     Dosage: 50 MG, EVERY 8 HRS
     Route: 065
  3. GABAPENTIN. [Concomitant]
     Active Substance: GABAPENTIN
     Indication: PRODUCT USED FOR UNKNOWN INDICATION
     Dosage: 100 MG, AT BED TIME
     Route: 065

REACTIONS (17)
  - Rales [Recovered/Resolved]
  - Joint swelling [Recovered/Resolved]
  - Pleural effusion [Recovered/Resolved]
  - Arthralgia [Recovered/Resolved]
  - Normocytic anaemia [Recovered/Resolved]
  - Pulmonary haemorrhage [Recovered/Resolved]
  - Glomerulonephritis rapidly progressive [Recovered/Resolved]
  - Pulmonary renal syndrome [Recovered/Resolved]
  - Anti-neutrophil cytoplasmic antibody positive vasculitis [Recovered/Resolved]
  - Leukocytosis [Recovered/Resolved]
  - Peripheral swelling [Recovered/Resolved]
  - Renal vasculitis [Recovered/Resolved]
  - Haemoptysis [Recovered/Resolved]
  - Tachypnoea [Unknown]
  - Haematuria [Recovered/Resolved]
  - Lymphopenia [Recovered/Resolved]
  - Dyspnoea [Recovered/Resolved]
